FAERS Safety Report 8252677-0 (Version None)
Quarter: 2012Q2

REPORT INFORMATION
  Report Type: 
  Country: None (occurrence: None)
  Receive Date: 20120402
  Receipt Date: 20120309
  Transmission Date: 20120825
  Serious: Yes (Hospitalization, Other)
  Sender: FDA-Public Use
  Company Number: FR-BAXTER-2012BH007573

PATIENT
  Sex: Male
  Weight: 63 kg

DRUGS (9)
  1. CORTICOSTEROIDS [Concomitant]
     Route: 048
     Dates: start: 20111029
  2. FEIBA [Suspect]
     Route: 042
     Dates: start: 20111128, end: 20111202
  3. GRANOCYTE ^AMRAD^ [Concomitant]
     Route: 058
     Dates: start: 20110101
  4. FEIBA [Suspect]
     Dosage: 5000 U X 2
     Route: 042
     Dates: start: 20111027, end: 20111029
  5. FEIBA [Suspect]
     Dosage: 5000 U
     Route: 042
     Dates: start: 20111030, end: 20111111
  6. NOXAFIL [Concomitant]
     Indication: INFECTION PROPHYLAXIS
     Route: 048
     Dates: start: 20110101
  7. BACTRIM [Concomitant]
     Indication: INFECTION PROPHYLAXIS
     Route: 048
     Dates: start: 20110101
  8. FEIBA [Suspect]
     Route: 042
     Dates: start: 20111125, end: 20111127
  9. VALACICLOVIR [Concomitant]
     Indication: INFECTION PROPHYLAXIS
     Route: 048
     Dates: start: 20110101

REACTIONS (1)
  - BLOOD FIBRINOGEN DECREASED [None]
